FAERS Safety Report 25960922 (Version 1)
Quarter: 2025Q4

REPORT INFORMATION
  Report Type: Spontaneous
  Country: US (occurrence: US)
  Receive Date: 20251027
  Receipt Date: 20251027
  Transmission Date: 20260117
  Serious: No
  Sender: BRISTOL-MYERS SQUIBB COMPANY
  Company Number: US-BRISTOL-MYERS SQUIBB COMPANY-2025-145565

PATIENT
  Age: 60 Year
  Sex: Female

DRUGS (2)
  1. ORENCIA [Suspect]
     Active Substance: ABATACEPT
     Indication: Immunology test abnormal
     Route: 058
     Dates: start: 202510
  2. ORENCIA [Suspect]
     Active Substance: ABATACEPT
     Indication: Rheumatoid arthritis

REACTIONS (2)
  - Loss of personal independence in daily activities [Unknown]
  - Pain [Unknown]

NARRATIVE: CASE EVENT DATE: 20251024
